FAERS Safety Report 15332759 (Version 1)
Quarter: 2018Q3

REPORT INFORMATION
  Report Type: Spontaneous
  Country: CA (occurrence: CA)
  Receive Date: 20180830
  Receipt Date: 20180830
  Transmission Date: 20181010
  Serious: Yes (Other)
  Sender: FDA-Public Use
  Company Number: CA-REGENERON PHARMACEUTICALS, INC.-2018-35483

PATIENT

DRUGS (1)
  1. EYLEA [Suspect]
     Active Substance: AFLIBERCEPT
     Indication: NEOVASCULAR AGE-RELATED MACULAR DEGENERATION
     Dosage: NUMBER OF EYLEA DOSES BEFORE THE EVENT 11+8 (19)
     Route: 031
     Dates: start: 20150909, end: 20170524

REACTIONS (2)
  - Blindness [Recovering/Resolving]
  - Eye inflammation [Unknown]

NARRATIVE: CASE EVENT DATE: 20170601
